FAERS Safety Report 18792299 (Version 1)
Quarter: 2021Q1

REPORT INFORMATION
  Report Type: Report from Study
  Country: None (occurrence: US)
  Receive Date: 20210127
  Receipt Date: 20210127
  Transmission Date: 20210419
  Serious: Yes (Other)
  Sender: FDA-Public Use
  Company Number: US-ABBVIE-21K-163-3744975-00

PATIENT
  Sex: Male

DRUGS (1)
  1. HUMIRA [Suspect]
     Active Substance: ADALIMUMAB
     Indication: RHEUMATOID ARTHRITIS
     Route: 058

REACTIONS (6)
  - Suicidal ideation [Unknown]
  - Musculoskeletal discomfort [Unknown]
  - Impaired self-care [Unknown]
  - Pain in extremity [Unknown]
  - Mental disorder [Unknown]
  - Arthralgia [Unknown]
